FAERS Safety Report 7137175-X (Version None)
Quarter: 2010Q4

REPORT INFORMATION
  Report Type: 
  Country: None (occurrence: None)
  Receive Date: 20101206
  Receipt Date: 20070306
  Transmission Date: 20110411
  Serious: Yes (Death)
  Sender: FDA-Public Use
  Company Number: US-ACTELION-A-US2007-14532

PATIENT

DRUGS (8)
  1. ILOPROST INHALATION SOLUTION 5UG US [Suspect]
     Indication: PULMONARY HYPERTENSION
     Dosage: 5 UG, 5-6 X DAY
     Route: 055
     Dates: start: 20050927, end: 20070304
  2. FLEXERIL [Concomitant]
  3. SYNTHROID [Concomitant]
  4. CLARINEX [Concomitant]
  5. ASPIRIN [Concomitant]
  6. MICARDIS [Concomitant]
  7. VITAMIN B-12 [Concomitant]
  8. CENTRUM SILVER [Concomitant]

REACTIONS (1)
  - DEATH [None]
